FAERS Safety Report 7534633 (Version 2)
Quarter: 2012Q4

REPORT INFORMATION
  Report Type: Spontaneous
  Country: US (occurrence: None)
  Receive Date: 20100728
  Receipt Date: 20120912
  Transmission Date: 20130627
  Serious: Yes (Death)
  Sender: FDA-Public Use
  Company Number: 2010002889

PATIENT
  Age: 76 Year
  Sex: Male

DRUGS (4)
  1. TARCEVA (ERLOTINIB HYDROCHLORIDE) TABLET [Suspect]
     Indication: LUNG CARCINOMA CELL TYPE UNSPECIFIED STAGE 0
     Dosage: ORAL
     Route: 048
  2. TARCEVA (ERLOTINIB HYDROCHLORIDE) TABLET [Suspect]
     Indication: METASTASES TO BRAIN
     Dosage: ORAL
     Route: 048
  3. TARCEVA (ERLOTINIB HYDROCHLORIDE) TABLET [Suspect]
     Indication: METASTASES TO SPINE
     Dosage: ORAL
     Route: 048
  4. TARCEVA (ERLOTINIB HYDROCHLORIDE) TABLET [Suspect]
     Indication: METASTASES TO LIVER
     Dosage: ORAL
     Route: 048

REACTIONS (1)
  - Death [None]
